FAERS Safety Report 11803999 (Version 1)
Quarter: 2015Q4

REPORT INFORMATION
  Report Type: Spontaneous
  Country: US (occurrence: US)
  Receive Date: 20151204
  Receipt Date: 20151204
  Transmission Date: 20160305
  Serious: No
  Sender: FDA-Public Use
  Company Number: US-ASTRAZENECA-2015SF18259

PATIENT
  Sex: Female
  Weight: 53.5 kg

DRUGS (2)
  1. ANASTROZOLE. [Suspect]
     Active Substance: ANASTROZOLE
     Indication: OVARIAN CANCER
     Route: 048
     Dates: start: 20150910
  2. TAXOTERE [Concomitant]
     Active Substance: DOCETAXEL
     Dates: start: 20140203

REACTIONS (8)
  - Pulmonary oedema [None]
  - Lower limb fracture [None]
  - Eye swelling [Unknown]
  - Lacrimation increased [Unknown]
  - Abdominal pain upper [Unknown]
  - Off label use [Unknown]
  - Muscle spasms [None]
  - Product use issue [Unknown]
